FAERS Safety Report 8760900 (Version 1)
Quarter: 2012Q4

REPORT INFORMATION
  Report Type: 
  Country: FR (occurrence: FR)
  Receive Date: 20120830
  Receipt Date: 20120830
  Transmission Date: 20130627
  Serious: Yes (Hospitalization)
  Sender: FDA-Public Use
  Company Number: FR-B.I. PHARMACEUTICALS,INC./RIDGEFIELD-2012-FF-01097FF

PATIENT
  Age: 89 Year
  Sex: Female

DRUGS (2)
  1. ATROVENT [Suspect]
     Dosage: 05 mg/2 ml x 2 daily
     Route: 055
     Dates: start: 20120728, end: 20120803
  2. BRICANYL [Suspect]
     Dosage: 05/ mg/2 ml x 4 daily
     Route: 055
     Dates: start: 20120728, end: 20120803

REACTIONS (3)
  - Malaise [Recovered/Resolved]
  - Tachycardia [Recovered/Resolved]
  - Hypertension [Recovered/Resolved]
